FAERS Safety Report 19276367 (Version 2)
Quarter: 2021Q2

REPORT INFORMATION
  Report Type: Spontaneous
  Country: JP (occurrence: JP)
  Receive Date: 20210520
  Receipt Date: 20210603
  Transmission Date: 20210717
  Serious: Yes (Death, Hospitalization)
  Sender: FDA-Public Use
  Company Number: JP-BAXTER-2021BAX011082

PATIENT
  Age: 80 Year
  Sex: Male
  Weight: 79.7 kg

DRUGS (12)
  1. BLEOMYCIN [Suspect]
     Active Substance: BLEOMYCIN SULFATE
     Indication: CHEMOTHERAPY
     Dosage: SECOND COURSE, ABVD THERAPY
     Route: 041
  2. BLEOMYCIN [Suspect]
     Active Substance: BLEOMYCIN SULFATE
     Dosage: DAY 15 OF 3RD COURSE, ABVD THERAPY (LAST DOSE PRIOR TO ADVERSE EVENT)
     Route: 041
     Dates: start: 20210319
  3. EXAL (VINBLASTINE SULFATE) [Suspect]
     Active Substance: VINBLASTINE SULFATE
     Indication: HODGKIN^S DISEASE
     Dosage: 1ST COURSE, ABVD THEARPY
     Route: 065
     Dates: start: 20210106
  4. EXAL (VINBLASTINE SULFATE) [Suspect]
     Active Substance: VINBLASTINE SULFATE
     Dosage: 2ND COURSE, ABVD THEARPY
     Route: 065
  5. DOXORUBICIN [Suspect]
     Active Substance: DOXORUBICIN
     Dosage: SECOND COURSE, ABVD THERAPY
     Route: 065
  6. DACARBAZINE. [Suspect]
     Active Substance: DACARBAZINE
     Indication: HODGKIN^S DISEASE
     Dosage: 1ST COURSE, ABVD THERAPY
     Route: 065
     Dates: start: 20210106
  7. DACARBAZINE. [Suspect]
     Active Substance: DACARBAZINE
     Dosage: 2ND COURSE, ABVD THERAPY
     Route: 065
  8. DOXORUBICIN [Suspect]
     Active Substance: DOXORUBICIN
     Dosage: DAY 15 OF 3RD COURSE, ABVD THERAPY
     Route: 065
     Dates: start: 20210319
  9. EXAL (VINBLASTINE SULFATE) [Suspect]
     Active Substance: VINBLASTINE SULFATE
     Dosage: DAY 15 OF 3RD COURSE, ABVD THERAPY
     Route: 065
     Dates: start: 20210319
  10. BLEOMYCIN [Suspect]
     Active Substance: BLEOMYCIN SULFATE
     Indication: HODGKIN^S DISEASE
     Dosage: FIRST COURSE, ABVD THERAPY
     Route: 041
     Dates: start: 20210107
  11. DOXORUBICIN [Suspect]
     Active Substance: DOXORUBICIN
     Indication: HODGKIN^S DISEASE
     Dosage: FIRST COURSE, ABVD THERAPY
     Route: 065
     Dates: start: 20210106
  12. DACARBAZINE. [Suspect]
     Active Substance: DACARBAZINE
     Dosage: DAY 15 OF 3RD COURSE, ABVD THERAPY
     Route: 065
     Dates: start: 20210319

REACTIONS (5)
  - Cardio-respiratory arrest [Fatal]
  - Pyrexia [Unknown]
  - Oral candidiasis [Unknown]
  - Interstitial lung disease [Fatal]
  - Dizziness postural [Unknown]

NARRATIVE: CASE EVENT DATE: 20210326
